FAERS Safety Report 13943499 (Version 1)
Quarter: 2017Q3

REPORT INFORMATION
  Report Type: Spontaneous
  Country: US (occurrence: None)
  Receive Date: 20170907
  Receipt Date: 20170907
  Transmission Date: 20171128
  Serious: No
  Sender: FDA-Public Use
  Company Number: None

PATIENT
  Age: 62 Year
  Sex: Male
  Weight: 92.99 kg

DRUGS (17)
  1. GLUCOSAMINE HYDROCHLORIDE/HCL [Concomitant]
  2. COD LIVER OIL [Concomitant]
     Active Substance: COD LIVER OIL
  3. VITAMIN D3 [Concomitant]
     Active Substance: CHOLECALCIFEROL
  4. FUROSEMIDE. [Concomitant]
     Active Substance: FUROSEMIDE
  5. TURMERIC FORCE [Concomitant]
  6. ZYLAMEND PROSTATE [Concomitant]
  7. POTASSIUM CL [Concomitant]
     Active Substance: POTASSIUM CHLORIDE
  8. ASPIRIN 81 MG COATED BAYER TABLETS [Concomitant]
  9. ATORVASTATIN 40MG-SUBSTITUTE FOR LIPITOR 40MG [Suspect]
     Active Substance: ATORVASTATIN CALCIUM
     Indication: CARDIAC DISORDER
     Route: 048
     Dates: start: 20170427, end: 20170429
  10. TYLENOL EXTRA STRENGTH [Concomitant]
     Active Substance: ACETAMINOPHEN
  11. KERA-42 TOPICAL CREAM [Concomitant]
  12. COQ10 [Concomitant]
     Active Substance: UBIDECARENONE
  13. LISINOPRIL. [Concomitant]
     Active Substance: LISINOPRIL
  14. METOPROLOL ER SUCCINATE [Concomitant]
     Active Substance: METOPROLOL SUCCINATE
  15. TRIAMCINOLE ACETONIDE [Concomitant]
  16. MULTI VITAMIN [Concomitant]
     Active Substance: VITAMINS
  17. BAUSCH+LOMB OCUVITE [Concomitant]

REACTIONS (2)
  - Flushing [None]
  - Dyspnoea [None]

NARRATIVE: CASE EVENT DATE: 20170427
